FAERS Safety Report 16778676 (Version 1)
Quarter: 2019Q3

REPORT INFORMATION
  Report Type: Spontaneous
  Country: DE (occurrence: DE)
  Receive Date: 20190906
  Receipt Date: 20190906
  Transmission Date: 20191005
  Serious: Yes (Other)
  Sender: FDA-Public Use
  Company Number: DE-TEVA-2019-DE-1101218

PATIENT
  Age: 6 Decade
  Sex: Female

DRUGS (1)
  1. TRIAMTEREN COMP.-RATIOPHARM 50 MG/25 MG FILMTABLETTEN [Suspect]
     Active Substance: HYDROCHLOROTHIAZIDE\TRIAMTERENE
     Dosage: INTAKE FOR YEARS?1 DF CONTAINS 50 MG TRIAMTERENE AND 25 MG HYDROCHLOROTHIAZIDE.
     Route: 048

REACTIONS (1)
  - Haemorrhage subcutaneous [Not Recovered/Not Resolved]

NARRATIVE: CASE EVENT DATE: 20190807
